FAERS Safety Report 4377385-8 (Version None)
Quarter: 2004Q2

REPORT INFORMATION
  Report Type: 
  Country: None (occurrence: None)
  Receive Date: 20040615
  Receipt Date: 20040517
  Transmission Date: 20050107
  Serious: Yes (Disabling, Other)
  Sender: FDA-Public Use
  Company Number: JP-BRISTOL-MYERS SQUIBB COMPANY-12596250

PATIENT
  Age: 59 Year
  Sex: Female

DRUGS (11)
  1. GATIFLO TABS 100 MG [Suspect]
     Indication: SUBCUTANEOUS ABSCESS
     Route: 048
     Dates: start: 20040515, end: 20040517
  2. AMARYL [Interacting]
     Indication: DIABETES MELLITUS
     Dosage: 17-MAY-2004 1 MG/DAY THEN 19-MAY-2004 ONGOING 2 MG/DAY
     Route: 048
     Dates: start: 20040213
  3. BASEN [Concomitant]
     Dosage: NOT GIVEN ON 18-MAY-2005
     Route: 048
     Dates: start: 20040218
  4. TICLOPIDINE HCL [Concomitant]
     Route: 048
     Dates: start: 20040213
  5. MARILEON N [Concomitant]
     Route: 048
     Dates: start: 20040213
  6. LOCHOL [Concomitant]
     Route: 048
     Dates: start: 20040213
  7. TAKEPRON [Concomitant]
     Route: 048
     Dates: start: 20040213
  8. SELBEX [Concomitant]
     Route: 048
     Dates: start: 20040213
  9. MUCODYNE [Concomitant]
     Route: 048
     Dates: start: 20040213
  10. LENDORM [Concomitant]
     Route: 048
     Dates: start: 20040213
  11. LANTUS [Concomitant]
     Dates: end: 20040510

REACTIONS (3)
  - DEPRESSED LEVEL OF CONSCIOUSNESS [None]
  - DRUG INTERACTION [None]
  - HYPOGLYCAEMIA [None]
